FAERS Safety Report 6014743-X (Version None)
Quarter: 2008Q4

REPORT INFORMATION
  Report Type: 
  Country: None (occurrence: None)
  Receive Date: 20081219
  Receipt Date: 20081204
  Transmission Date: 20090506
  Serious: Yes (Other)
  Sender: FDA-Public Use
  Company Number: DE-GENENTECH-270065

PATIENT
  Sex: Male

DRUGS (9)
  1. MABTHERA [Suspect]
     Indication: NON-HODGKIN'S LYMPHOMA
     Dosage: 680 MG, UNK
     Route: 042
     Dates: start: 20080911
  2. ENDOXAN [Suspect]
     Indication: NON-HODGKIN'S LYMPHOMA
     Dosage: 1400 MG, UNK
     Route: 042
     Dates: start: 20080911
  3. ADRIBLASTIN [Suspect]
     Indication: NON-HODGKIN'S LYMPHOMA
     Dosage: 100 MG, UNK
     Route: 042
     Dates: start: 20080911
  4. VINCRISTINE [Concomitant]
     Indication: DRUG USE FOR UNKNOWN INDICATION
     Dosage: UNK
     Dates: start: 20080911
  5. PREDNISONE TAB [Concomitant]
     Indication: DRUG USE FOR UNKNOWN INDICATION
     Dosage: UNK
     Dates: start: 20080911
  6. SOLU-DECORTIN [Concomitant]
     Indication: DRUG USE FOR UNKNOWN INDICATION
  7. CLEMASTINE FUMARATE [Concomitant]
     Indication: DRUG USE FOR UNKNOWN INDICATION
  8. VELBE [Concomitant]
     Indication: DRUG USE FOR UNKNOWN INDICATION
  9. DECORTIN H [Concomitant]
     Indication: DRUG USE FOR UNKNOWN INDICATION
     Dosage: UNK
     Dates: start: 20080911, end: 20080915

REACTIONS (5)
  - AGRANULOCYTOSIS [None]
  - CHILLS [None]
  - HYPERHIDROSIS [None]
  - PYREXIA [None]
  - TRANSMISSION OF AN INFECTIOUS AGENT VIA A MEDICINAL PRODUCT [None]
